FAERS Safety Report 7710218-8 (Version None)
Quarter: 2011Q3

REPORT INFORMATION
  Report Type: 
  Country: None (occurrence: None)
  Receive Date: 20110825
  Receipt Date: 20110818
  Transmission Date: 20111222
  Serious: Yes (Other)
  Sender: FDA-Public Use
  Company Number: US-PFIZER INC-2007036213

PATIENT
  Sex: Female

DRUGS (2)
  1. NEURONTIN [Suspect]
     Indication: NECK PAIN
  2. NEURONTIN [Suspect]
     Indication: MUSCULOSKELETAL PAIN

REACTIONS (3)
  - CARDIAC DISORDER [None]
  - HYPERTENSION [None]
  - NERVOUSNESS [None]
